FAERS Safety Report 9509258 (Version 10)
Quarter: 2014Q1

REPORT INFORMATION
  Report Type: Report from Study
  Country: DE (occurrence: DE)
  Receive Date: 20130909
  Receipt Date: 20140129
  Transmission Date: 20141002
  Serious: Yes (Hospitalization, Other)
  Sender: FDA-Public Use
  Company Number: DE-TEVA-424291USA

PATIENT
  Age: 75 Year
  Sex: Male
  Weight: 92.7 kg

DRUGS (14)
  1. BENDAMUSTINE [Suspect]
     Indication: MANTLE CELL LYMPHOMA STAGE IV
     Route: 042
     Dates: start: 20130704, end: 20130809
  2. BENDAMUSTINE [Suspect]
     Route: 042
     Dates: start: 20130815
  3. BENDAMUSTINE [Suspect]
     Route: 042
     Dates: start: 20130816
  4. RITUXIMAB [Suspect]
     Indication: MANTLE CELL LYMPHOMA STAGE IV
     Route: 042
     Dates: start: 20130704, end: 20130809
  5. TEMSIROLIMUS [Suspect]
     Indication: MANTLE CELL LYMPHOMA STAGE IV
     Route: 042
     Dates: start: 20130705, end: 20130809
  6. TEMSIROLIMUS [Suspect]
     Dosage: UNKNOWN/D
     Route: 042
     Dates: start: 20130719
  7. PANTOZOL [Concomitant]
  8. RAMIPRIL [Concomitant]
  9. HYDROCHLOROTHIAZIDE [Concomitant]
  10. ACETYLSALICYLIC ACID [Concomitant]
  11. GRANISETRON [Concomitant]
  12. FERROSANOL [Concomitant]
     Dates: start: 20130704
  13. FENISTIL [Concomitant]
     Dates: start: 20130704
  14. PARACETAMOL [Concomitant]
     Dates: start: 20130704

REACTIONS (2)
  - Pneumonitis [Recovering/Resolving]
  - Candiduria [Recovering/Resolving]
